FAERS Safety Report 25961482 (Version 1)
Quarter: 2025Q4

REPORT INFORMATION
  Report Type: Spontaneous
  Country: US (occurrence: US)
  Receive Date: 20251027
  Receipt Date: 20251027
  Transmission Date: 20260117
  Serious: No
  Sender: BOEHRINGER INGELHEIM
  Company Number: US-Komodo Health-a23aa00000B0egfAAB

PATIENT
  Age: 62 Year
  Sex: Female

DRUGS (1)
  1. JARDIANCE [Suspect]
     Active Substance: EMPAGLIFLOZIN
     Indication: Chronic kidney disease
     Dosage: FORM STRENGTH: 10 MILLIGRAM

REACTIONS (2)
  - Rash [Not Recovered/Not Resolved]
  - Skin hypopigmentation [Unknown]

NARRATIVE: CASE EVENT DATE: 20250501
